FAERS Safety Report 5086065-5 (Version None)
Quarter: 2006Q3

REPORT INFORMATION
  Report Type: 
  Country: None (occurrence: None)
  Receive Date: 20060818
  Receipt Date: 20060809
  Transmission Date: 20061208
  Serious: Yes (Other)
  Sender: FDA-Public Use
  Company Number: 14575

PATIENT
  Age: 27 Year
  Sex: Male

DRUGS (12)
  1. MORPHINE [Suspect]
     Indication: PAIN PROPHYLAXIS
  2. MORPHINE [Suspect]
     Indication: PAIN PROPHYLAXIS
     Dosage: 10 MG ONCE IV
     Route: 042
  3. MORPHINE [Suspect]
     Indication: PAIN PROPHYLAXIS
  4. NADROPARIN [Concomitant]
  5. CEFAZOLIN [Concomitant]
  6. ACETAMINOPHEN [Concomitant]
  7. DICLOFENAC [Concomitant]
  8. LIDOCAINE [Concomitant]
  9. BUPIVACAINE [Concomitant]
  10. EPHEDRINE [Concomitant]
  11. MIDAZOLAM HYDROCHLORIDE [Concomitant]
  12. MANNITOL [Concomitant]

REACTIONS (9)
  - ACUTE GENERALISED EXANTHEMATOUS PUSTULOSIS [None]
  - ALANINE AMINOTRANSFERASE INCREASED [None]
  - ASPARTATE AMINOTRANSFERASE INCREASED [None]
  - C-REACTIVE PROTEIN INCREASED [None]
  - LYMPHOCYTE TRANSFORMATION TEST POSITIVE [None]
  - RED BLOOD CELL SEDIMENTATION RATE INCREASED [None]
  - SKIN GRAFT [None]
  - SKIN TEST POSITIVE [None]
  - TOXIC SHOCK SYNDROME [None]
